FAERS Safety Report 15566339 (Version 1)
Quarter: 2018Q4

REPORT INFORMATION
  Report Type: Spontaneous
  Country: US (occurrence: US)
  Receive Date: 20181030
  Receipt Date: 20181030
  Transmission Date: 20190205
  Serious: Yes (Disabling)
  Sender: FDA-Public Use
  Company Number: None

PATIENT
  Age: 10 Year
  Sex: Female
  Weight: 35 kg

DRUGS (1)
  1. LUPRON DEPOT-PED [Suspect]
     Active Substance: LEUPROLIDE ACETATE
     Indication: PUBERTY
     Route: 030

REACTIONS (5)
  - Rash maculo-papular [None]
  - Gait disturbance [None]
  - Rash erythematous [None]
  - Peroneal nerve palsy [None]
  - Pain in extremity [None]

NARRATIVE: CASE EVENT DATE: 20180920
